FAERS Safety Report 5244679-3 (Version None)
Quarter: 2007Q1

REPORT INFORMATION
  Report Type: 
  Country: None (occurrence: None)
  Receive Date: 20061201
  Receipt Date: 20060816
  Transmission Date: 20070707
  Serious: No
  Sender: FDA-Public Use
  Company Number: 2006PV019530

PATIENT
  Age: 62 Year
  Sex: Male
  Weight: 120.2032 kg

DRUGS (4)
  1. BYETTA [Suspect]
     Indication: DIABETES MELLITUS NON-INSULIN-DEPENDENT
     Dosage: 5 MGG;BID;SC
     Route: 058
     Dates: start: 20060811
  2. LANTUS [Concomitant]
  3. METFORMIN [Concomitant]
  4. ROSIGLITAZONE [Concomitant]

REACTIONS (7)
  - BLOOD GLUCOSE INCREASED [None]
  - DECREASED APPETITE [None]
  - DRUG INEFFECTIVE [None]
  - DYSPEPSIA [None]
  - DYSURIA [None]
  - FLATULENCE [None]
  - URINE OUTPUT DECREASED [None]
